FAERS Safety Report 6947043-1 (Version None)
Quarter: 2010Q3

REPORT INFORMATION
  Report Type: 
  Country: None (occurrence: None)
  Receive Date: 20100827
  Receipt Date: 20090828
  Transmission Date: 20110219
  Serious: No
  Sender: FDA-Public Use
  Company Number: US-ABBOTT-09P-163-0594464-00

PATIENT
  Sex: Male

DRUGS (5)
  1. NIASPAN [Suspect]
     Indication: HIGH DENSITY LIPOPROTEIN DECREASED
     Dates: start: 20090827, end: 20090828
  2. PRILOSEC [Concomitant]
     Indication: PRODUCT USED FOR UNKNOWN INDICATION
  3. SYNTHROID [Concomitant]
     Indication: PRODUCT USED FOR UNKNOWN INDICATION
  4. INHALER UNKNOWN NAME [Concomitant]
     Indication: PRODUCT USED FOR UNKNOWN INDICATION
  5. FOSINOPRIL SODIUM [Concomitant]
     Indication: PRODUCT USED FOR UNKNOWN INDICATION

REACTIONS (9)
  - ABDOMINAL PAIN UPPER [None]
  - DIARRHOEA [None]
  - ERYTHEMA [None]
  - FLUSHING [None]
  - MYALGIA [None]
  - NAUSEA [None]
  - PALLOR [None]
  - PRURITUS [None]
  - SKIN BURNING SENSATION [None]
